FAERS Safety Report 7623397-8 (Version None)
Quarter: 2011Q3

REPORT INFORMATION
  Report Type: 
  Country: None (occurrence: None)
  Receive Date: 20110720
  Receipt Date: 20110714
  Transmission Date: 20111222
  Serious: Yes (Other)
  Sender: FDA-Public Use
  Company Number: GB-ROCHE-790239

PATIENT
  Age: 69 Year
  Sex: Male

DRUGS (1)
  1. TOCILIZUMAB [Suspect]
     Route: 065

REACTIONS (4)
  - HEART RATE DECREASED [None]
  - BLOOD PRESSURE SYSTOLIC DECREASED [None]
  - LOSS OF CONSCIOUSNESS [None]
  - UNRESPONSIVE TO STIMULI [None]
